FAERS Safety Report 8941309 (Version 1)
Quarter: 2012Q4

REPORT INFORMATION
  Report Type: 
  Country: DE (occurrence: DE)
  Receive Date: 20121203
  Receipt Date: 20121203
  Transmission Date: 20130627
  Serious: Yes (Hospitalization, Other)
  Sender: FDA-Public Use
  Company Number: DE-ELI_LILLY_AND_COMPANY-DE201211007283

PATIENT
  Age: 59 Year
  Sex: Male

DRUGS (2)
  1. FORSTEO [Suspect]
     Indication: OSTEOPOROSIS
     Dosage: UNK, qd
     Route: 058
     Dates: start: 20111121
  2. ASS [Concomitant]
     Dosage: UNK, unknown
     Route: 065

REACTIONS (2)
  - Cerebrovascular accident [Not Recovered/Not Resolved]
  - Vascular calcification [Not Recovered/Not Resolved]
